FAERS Safety Report 9258719 (Version 3)
Quarter: 2013Q2

REPORT INFORMATION
  Report Type: Spontaneous
  Country: JP (occurrence: JP)
  Receive Date: 20130426
  Receipt Date: 20130606
  Transmission Date: 20140414
  Serious: Yes (Other)
  Sender: FDA-Public Use
  Company Number: JP-BRISTOL-MYERS SQUIBB COMPANY-18823302

PATIENT
  Age: 54 Year
  Sex: Female
  Weight: 57.7 kg

DRUGS (1)
  1. ABILIFY TABS [Suspect]
     Route: 048
     Dates: start: 20130328, end: 20130415

REACTIONS (1)
  - Lung disorder [Recovering/Resolving]
